FAERS Safety Report 9742107 (Version 2)
Quarter: 2014Q1

REPORT INFORMATION
  Report Type: Spontaneous
  Country: US (occurrence: US)
  Receive Date: 20131210
  Receipt Date: 20140127
  Transmission Date: 20141002
  Serious: Yes (Hospitalization)
  Sender: FDA-Public Use
  Company Number: US-BAYER-2013-147924

PATIENT
  Age: 31 Year
  Sex: Female
  Weight: 77.1 kg

DRUGS (2)
  1. MIRENA [Suspect]
     Dosage: 20 MCG/24HR, CONT
     Route: 015
     Dates: start: 20041222, end: 20060202
  2. ULTRAM [Concomitant]

REACTIONS (4)
  - Uterine perforation [None]
  - Pelvic pain [None]
  - Injury [None]
  - Emotional distress [None]
